FAERS Safety Report 6983480-7 (Version None)
Quarter: 2010Q3

REPORT INFORMATION
  Report Type: 
  Country: None (occurrence: None)
  Receive Date: 20100914
  Receipt Date: 20080708
  Transmission Date: 20110219
  Serious: No
  Sender: FDA-Public Use
  Company Number: US-WYE-H04993508

PATIENT
  Age: 81 Year
  Sex: Female
  Weight: 54.48 kg

DRUGS (3)
  1. ADVIL LIQUI-GELS [Suspect]
     Indication: NECK PAIN
     Route: 048
     Dates: start: 20080706, end: 20080707
  2. ASPIRIN [Concomitant]
  3. VITAMIN B COMPLEX CAP [Concomitant]

REACTIONS (2)
  - ABDOMINAL PAIN UPPER [None]
  - FEELING HOT [None]
